FAERS Safety Report 9686982 (Version 3)
Quarter: 2013Q4

REPORT INFORMATION
  Report Type: Report from Study
  Country: AU (occurrence: AU)
  Receive Date: 20131113
  Receipt Date: 20131204
  Transmission Date: 20140711
  Serious: Yes (Life-Threatening, Hospitalization, Other)
  Sender: FDA-Public Use
  Company Number: PHHO2011AU18323

PATIENT
  Age: 64 Year
  Sex: Male
  Weight: 84.6 kg

DRUGS (4)
  1. ENALAPRIL [Suspect]
     Indication: CARDIAC FAILURE
     Dosage: UNK
     Route: 048
     Dates: start: 20100630
  2. RAMACE [Concomitant]
     Indication: CARDIAC FAILURE
     Dosage: 2.5 MG, QD
     Route: 048
     Dates: start: 20131101, end: 20131107
  3. AMIODARONE [Concomitant]
     Indication: VENTRICULAR TACHYCARDIA
     Dosage: 100 MG, QD
     Route: 048
     Dates: start: 20120602, end: 20131106
  4. AMIODARONE [Concomitant]
     Dosage: UNK
     Dates: start: 20131107

REACTIONS (3)
  - Concomitant disease progression [Recovering/Resolving]
  - Acute myocardial infarction [Recovering/Resolving]
  - Ventricular tachycardia [Recovered/Resolved with Sequelae]
